FAERS Safety Report 25563478 (Version 1)
Quarter: 2025Q3

REPORT INFORMATION
  Report Type: Report from Study
  Country: EU (occurrence: EU)
  Receive Date: 20250716
  Receipt Date: 20250716
  Transmission Date: 20251021
  Serious: Yes (Hospitalization)
  Sender: ABBVIE
  Company Number: EU-ABBVIE-6106794

PATIENT
  Sex: Male
  Weight: 101 kg

DRUGS (4)
  1. RINVOQ [Suspect]
     Active Substance: UPADACITINIB
     Indication: Colitis ulcerative
     Route: 048
     Dates: start: 20240610, end: 20241210
  2. CORTISONE [Concomitant]
     Active Substance: CORTISONE
     Indication: Product used for unknown indication
  3. CORTISONE [Concomitant]
     Active Substance: CORTISONE
     Indication: Product used for unknown indication
  4. CORTISONE [Concomitant]
     Active Substance: CORTISONE
     Indication: Product used for unknown indication

REACTIONS (9)
  - General physical health deterioration [Not Recovered/Not Resolved]
  - Proctalgia [Recovered/Resolved]
  - Mucous stools [Unknown]
  - Infection susceptibility increased [Unknown]
  - Therapeutic product effect decreased [Not Recovered/Not Resolved]
  - Iron deficiency anaemia [Unknown]
  - Chills [Unknown]
  - Weight decreased [Unknown]
  - Microcytic anaemia [Unknown]

NARRATIVE: CASE EVENT DATE: 20241210
